FAERS Safety Report 24343156 (Version 1)
Quarter: 2024Q3

REPORT INFORMATION
  Report Type: Spontaneous
  Country: CZ (occurrence: CZ)
  Receive Date: 20240920
  Receipt Date: 20240920
  Transmission Date: 20241017
  Serious: Yes (Other)
  Sender: AEGERION
  Company Number: CZ-CHIESI LTD.-AEGR007404

PATIENT

DRUGS (1)
  1. LOMITAPIDE MESYLATE [Suspect]
     Active Substance: LOMITAPIDE MESYLATE
     Indication: Type IIa hyperlipidaemia
     Dosage: 10 MILLIGRAM

REACTIONS (1)
  - Liver function test increased [Unknown]
